FAERS Safety Report 7814054-3 (Version None)
Quarter: 2011Q4

REPORT INFORMATION
  Report Type: 
  Country: None (occurrence: None)
  Receive Date: 20111012
  Receipt Date: 20111003
  Transmission Date: 20120403
  Serious: Yes (Other)
  Sender: FDA-Public Use
  Company Number: 2011HGS-002576

PATIENT
  Age: 67 Year
  Sex: Female

DRUGS (6)
  1. PLAVIX [Concomitant]
  2. BENLYSTA [Suspect]
     Indication: SYSTEMIC LUPUS ERYTHEMATOSUS
     Dosage: 10 MG/KG, 1 IN 2 WK, INTRAVENOUS DRIP
     Route: 041
     Dates: start: 20110712
  3. CRESTOR [Concomitant]
  4. DIGOXIN [Concomitant]
  5. PLAQUENIL (HYDROXYCHLOROQUINE SULFATE) (HYDROXYCHLOROQUINE SULFATE) [Concomitant]
  6. PEDNISONE (PREDNISONE) (PREDNISONE) [Concomitant]

REACTIONS (2)
  - LEUKOPENIA [None]
  - NEUTROPENIA [None]
